FAERS Safety Report 8429064-5 (Version None)
Quarter: 2012Q2

REPORT INFORMATION
  Report Type: 
  Country: None (occurrence: None)
  Receive Date: 20120612
  Receipt Date: 20120601
  Transmission Date: 20120825
  Serious: Yes (Hospitalization, Other)
  Sender: FDA-Public Use
  Company Number: US-JNJFOC-20120204998

PATIENT
  Sex: Female
  Weight: 68.04 kg

DRUGS (6)
  1. LEXAPRO [Concomitant]
     Indication: DEPRESSION
     Route: 065
     Dates: end: 20120401
  2. NAPROXEN (ALEVE) [Concomitant]
     Indication: PAIN
     Route: 048
  3. ADDERALL 5 [Concomitant]
     Indication: ATTENTION DEFICIT/HYPERACTIVITY DISORDER
     Route: 048
  4. REMICADE [Suspect]
     Route: 042
     Dates: start: 20100101
  5. REMICADE [Suspect]
     Indication: RHEUMATOID ARTHRITIS
     Route: 042
     Dates: start: 20110101
  6. VITAMIN D [Concomitant]
     Route: 065

REACTIONS (7)
  - DRUG EFFECT DECREASED [None]
  - BONE LOSS [None]
  - EATING DISORDER [None]
  - BLADDER OPERATION [None]
  - PAIN IN EXTREMITY [None]
  - LOOSE TOOTH [None]
  - GINGIVITIS [None]
